FAERS Safety Report 19038740 (Version 2)
Quarter: 2021Q1

REPORT INFORMATION
  Report Type: Spontaneous
  Country: PT (occurrence: PT)
  Receive Date: 20210322
  Receipt Date: 20210322
  Transmission Date: 20210420
  Serious: Yes (Death, Other)
  Sender: FDA-Public Use
  Company Number: PT-PFIZER INC-2021006844

PATIENT
  Age: 59 Year
  Sex: Male

DRUGS (2)
  1. BRAFTOVI [Suspect]
     Active Substance: ENCORAFENIB
     Indication: COLORECTAL CANCER METASTATIC
     Dosage: 300 MG, QD (1/DAY)
     Route: 048
     Dates: start: 202009
  2. CETUXIMAB. [Suspect]
     Active Substance: CETUXIMAB
     Indication: COLORECTAL CANCER METASTATIC
     Dosage: 500 MG/M2, EVERY 2 WEEKS
     Route: 065
     Dates: start: 202009

REACTIONS (4)
  - Weight decreased [Not Recovered/Not Resolved]
  - Death [Fatal]
  - Asthenia [Not Recovered/Not Resolved]
  - C-reactive protein increased [Unknown]

NARRATIVE: CASE EVENT DATE: 202012
